FAERS Safety Report 5277115-1 (Version None)
Quarter: 2007Q1

REPORT INFORMATION
  Report Type: 
  Country: None (occurrence: None)
  Receive Date: 20061213
  Receipt Date: 20050328
  Transmission Date: 20070707
  Serious: No
  Sender: FDA-Public Use
  Company Number: 2005UW02841

PATIENT
  Age: 8 Year
  Sex: Male
  Weight: 35.3806 kg

DRUGS (7)
  1. SEROQUEL [Suspect]
     Indication: AUTISM
     Dosage: 100 MG DAILY PO
     Route: 048
  2. SEROQUEL [Suspect]
     Indication: AUTISM
     Dosage: 125 MG BID PO
     Route: 048
  3. RISPERDAL [Concomitant]
  4. TENEX [Concomitant]
  5. QUINIDINE SULFATE [Concomitant]
  6. ST. JOHN'S WART [Concomitant]
  7. CLONIDINE [Concomitant]

REACTIONS (1)
  - CONVULSION [None]
